FAERS Safety Report 25190423 (Version 1)
Quarter: 2025Q2

REPORT INFORMATION
  Report Type: Spontaneous
  Country: NZ (occurrence: NZ)
  Receive Date: 20250411
  Receipt Date: 20250411
  Transmission Date: 20250716
  Serious: Yes (Other)
  Sender: GE HEALTHCARE
  Company Number: NZ-GE HEALTHCARE-2025CSU004552

PATIENT
  Age: 56 Year
  Sex: Male
  Weight: 69 kg

DRUGS (1)
  1. OMNIPAQUE [Suspect]
     Active Substance: IOHEXOL
     Indication: Urogram
     Route: 042
     Dates: start: 20250307, end: 20250307

REACTIONS (3)
  - Sneezing [Recovered/Resolved]
  - Throat tightness [Recovered/Resolved]
  - Cough [Recovered/Resolved]

NARRATIVE: CASE EVENT DATE: 20250307
